FAERS Safety Report 8564670-9 (Version None)
Quarter: 2012Q3

REPORT INFORMATION
  Report Type: 
  Country: None (occurrence: None)
  Receive Date: 20120803
  Receipt Date: 20120724
  Transmission Date: 20120928
  Serious: Yes (Hospitalization)
  Sender: FDA-Public Use
  Company Number: US-JNJFOC-20120314809

PATIENT
  Sex: Male
  Weight: 61.7 kg

DRUGS (4)
  1. REMICADE [Suspect]
     Indication: INFLAMMATORY BOWEL DISEASE
     Route: 042
     Dates: start: 20120221
  2. REMICADE [Suspect]
     Route: 042
     Dates: start: 20120325
  3. REMICADE [Suspect]
     Route: 042
  4. MESALAMINE [Concomitant]
     Route: 048

REACTIONS (1)
  - INFUSION RELATED REACTION [None]
